FAERS Safety Report 6681950-2 (Version None)
Quarter: 2010Q2

REPORT INFORMATION
  Report Type: 
  Country: None (occurrence: None)
  Receive Date: 20100406
  Receipt Date: 20100331
  Transmission Date: 20101027
  Serious: Yes (Hospitalization, Other)
  Sender: FDA-Public Use
  Company Number: THYM-1001281

PATIENT
  Age: 19 Year
  Sex: Male

DRUGS (6)
  1. THYMOGLOBULIN [Suspect]
     Indication: APLASTIC ANAEMIA
     Dosage: 281 MG, QD, INTRAVENOUS
     Route: 042
     Dates: start: 20090910, end: 20090915
  2. THYMOGLOBULIN [Suspect]
  3. CYCLOSPORINE [Suspect]
     Indication: APLASTIC ANAEMIA
     Dosage: 175 MG, QD, ORAL; 125 MG, QD, ORAL
     Route: 048
     Dates: start: 20090910, end: 20091018
  4. CYCLOSPORINE [Suspect]
     Indication: APLASTIC ANAEMIA
     Dosage: 175 MG, QD, ORAL; 125 MG, QD, ORAL
     Route: 048
     Dates: start: 20091022
  5. ITRACONAZOLE [Concomitant]
  6. LEVETIRACETAM [Concomitant]

REACTIONS (3)
  - ABDOMINAL PAIN [None]
  - NEUTROPENIC SEPSIS [None]
  - PANCYTOPENIA [None]
